FAERS Safety Report 6314924-1 (Version None)
Quarter: 2009Q3

REPORT INFORMATION
  Report Type: 
  Country: None (occurrence: None)
  Receive Date: 20090818
  Receipt Date: 20090818
  Transmission Date: 20100115
  Serious: Yes (Hospitalization)
  Sender: FDA-Public Use
  Company Number: None

PATIENT
  Sex: Male
  Weight: 51.5286 kg

DRUGS (5)
  1. GEMCITABINE [Suspect]
     Indication: PANCREATIC CARCINOMA
     Dosage: 750 M/M2 IV WOOKS 1 + 2
     Route: 042
     Dates: start: 20090309, end: 20090720
  2. ERLOTINIB [Suspect]
     Indication: PANCREATIC CARCINOMA
     Dosage: 25 MG FIXED PO QD X 14 D
     Route: 048
     Dates: start: 20090309, end: 20090731
  3. FENTYNAL PATCH [Concomitant]
  4. DILAUDID [Concomitant]
  5. RADIATION [Concomitant]

REACTIONS (5)
  - ABDOMINAL PAIN [None]
  - DRUG TOXICITY [None]
  - IMPAIRED GASTRIC EMPTYING [None]
  - NAUSEA [None]
  - VOMITING [None]
